FAERS Safety Report 14479669 (Version 4)
Quarter: 2018Q2

REPORT INFORMATION
  Report Type: Spontaneous
  Country: JP (occurrence: JP)
  Receive Date: 20180202
  Receipt Date: 20180430
  Transmission Date: 20180711
  Serious: Yes (Hospitalization, Disabling)
  Sender: FDA-Public Use
  Company Number: PHJP2018JP002066

PATIENT
  Age: 50 Year
  Sex: Male
  Weight: 69.7 kg

DRUGS (3)
  1. COSENTYX [Suspect]
     Active Substance: SECUKINUMAB
     Indication: PSORIATIC ARTHROPATHY
     Dosage: 300 MG, QW
     Route: 058
     Dates: start: 20161003
  2. COSENTYX [Suspect]
     Active Substance: SECUKINUMAB
     Dosage: 300 MG, 4W
     Route: 058
     Dates: start: 20161128, end: 20180115
  3. HUMIRA [Suspect]
     Active Substance: ADALIMUMAB
     Indication: PSORIATIC ARTHROPATHY
     Dosage: 300 MG, 4W
     Route: 058
     Dates: start: 20130903, end: 20160927

REACTIONS (6)
  - Nephrotic syndrome [Not Recovered/Not Resolved]
  - Glomerulonephritis [Unknown]
  - Renal impairment [Not Recovered/Not Resolved]
  - Oedema [Unknown]
  - Swelling [Unknown]
  - Blood cholesterol increased [Unknown]

NARRATIVE: CASE EVENT DATE: 20180111
